FAERS Safety Report 9531767 (Version 3)
Quarter: 2014Q1

REPORT INFORMATION
  Report Type: Spontaneous
  Country: US (occurrence: US)
  Receive Date: 20130918
  Receipt Date: 20140124
  Transmission Date: 20141002
  Serious: No
  Sender: FDA-Public Use
  Company Number: US-PFIZER INC-2013266865

PATIENT
  Age: 43 Year
  Sex: Female

DRUGS (3)
  1. PRISTIQ [Suspect]
     Dosage: 100 MG, 1X/DAY (EVERY MORNING)
     Route: 048
  2. LATUDA [Concomitant]
     Dosage: UNK
  3. COGENTIN [Concomitant]
     Dosage: UNK

REACTIONS (1)
  - Weight decreased [Unknown]
